FAERS Safety Report 17795258 (Version 2)
Quarter: 2020Q3

REPORT INFORMATION
  Report Type: Spontaneous
  Country: NO (occurrence: NO)
  Receive Date: 20200515
  Receipt Date: 20200713
  Transmission Date: 20201102
  Serious: Yes (Other)
  Sender: FDA-Public Use
  Company Number: NO-ALEXION PHARMACEUTICALS INC-A202006489

PATIENT
  Age: 28 Year
  Sex: Female

DRUGS (9)
  1. SOLIRIS [Suspect]
     Active Substance: ECULIZUMAB
     Indication: OFF LABEL USE
     Dosage: 900 MG, TWO SINGLE DOSES ON DAY +6 AND +12
     Route: 042
  2. IMMUNOGLOBULIN                     /00025201/ [Concomitant]
     Active Substance: HUMAN IMMUNOGLOBULIN G
     Indication: PRODUCT USED FOR UNKNOWN INDICATION
     Dosage: 30 G, QD
     Route: 042
  3. METHYLPREDNISOLONE. [Concomitant]
     Active Substance: METHYLPREDNISOLONE
     Indication: PRODUCT USED FOR UNKNOWN INDICATION
     Dosage: 500 MG, QD
     Route: 042
  4. RITUXIMAB. [Concomitant]
     Active Substance: RITUXIMAB
     Indication: DELAYED HAEMOLYTIC TRANSFUSION REACTION
     Dosage: 1000 MG, SINGLE, 2.5 WEEKS BEFORE SURGERY
     Route: 042
  5. DARBEPOETIN ALFA [Concomitant]
     Active Substance: DARBEPOETIN ALFA
     Dosage: UNK
     Route: 065
  6. DARBEPOETIN ALFA [Concomitant]
     Active Substance: DARBEPOETIN ALFA
     Indication: PREOPERATIVE CARE
     Dosage: 200 MG, EVERY 2 DAYS FOR A WEEK
     Route: 058
  7. SOLIRIS [Suspect]
     Active Substance: ECULIZUMAB
     Indication: DELAYED HAEMOLYTIC TRANSFUSION REACTION
  8. RITUXIMAB. [Concomitant]
     Active Substance: RITUXIMAB
     Indication: PROPHYLAXIS
     Dosage: 1000 MG, SINGLE
     Route: 042
  9. HYDROXYUREA. [Concomitant]
     Active Substance: HYDROXYUREA
     Indication: PREOPERATIVE CARE
     Route: 065

REACTIONS (4)
  - Intravascular haemolysis [Recovered/Resolved]
  - Osteonecrosis [Unknown]
  - Haemoglobin decreased [Recovered/Resolved]
  - Off label use [Recovered/Resolved]
